FAERS Safety Report 10569824 (Version 1)
Quarter: 2014Q4

REPORT INFORMATION
  Report Type: Report from Study
  Country: US (occurrence: US)
  Receive Date: 20141107
  Receipt Date: 20141107
  Transmission Date: 20150529
  Serious: Yes (Other)
  Sender: FDA-Public Use
  Company Number: US-BRISTOL-MYERS SQUIBB COMPANY-21548664

PATIENT
  Age: 70 Year
  Sex: Female
  Weight: 72.56 kg

DRUGS (5)
  1. ACTOS [Concomitant]
     Active Substance: PIOGLITAZONE HYDROCHLORIDE
  2. METFORMIN HCL [Concomitant]
     Active Substance: METFORMIN HYDROCHLORIDE
  3. BLOOD PRESSURE MEDICATION [Concomitant]
     Active Substance: UNSPECIFIED INGREDIENT
  4. RAMIPRIL. [Concomitant]
     Active Substance: RAMIPRIL
  5. BYDUREON [Suspect]
     Active Substance: EXENATIDE
     Indication: TYPE 2 DIABETES MELLITUS
     Dosage: ONGOING
     Route: 058
     Dates: start: 201409

REACTIONS (1)
  - Retinal oedema [Not Recovered/Not Resolved]

NARRATIVE: CASE EVENT DATE: 201410
